FAERS Safety Report 7458061-1 (Version None)
Quarter: 2011Q2

REPORT INFORMATION
  Report Type: 
  Country: None (occurrence: None)
  Receive Date: 20110503
  Receipt Date: 20110503
  Transmission Date: 20111010
  Serious: Yes (Life-Threatening)
  Sender: FDA-Public Use
  Company Number: None

PATIENT
  Age: 94 Year
  Sex: Female
  Weight: 46.2669 kg

DRUGS (1)
  1. PRADAXA [Suspect]
     Indication: CARDIAC FIBRILLATION
     Dosage: 75MG TWICE A DAY PO
     Route: 048
     Dates: start: 20110225, end: 20110317

REACTIONS (6)
  - DEPRESSION [None]
  - BLINDNESS UNILATERAL [None]
  - ABDOMINAL PAIN UPPER [None]
  - WEIGHT DECREASED [None]
  - DIARRHOEA [None]
  - MACULAR DEGENERATION [None]
